FAERS Safety Report 9029458 (Version 1)
Quarter: 2013Q1

REPORT INFORMATION
  Report Type: Spontaneous
  Country: US (occurrence: US)
  Receive Date: 20130125
  Receipt Date: 20130125
  Transmission Date: 20140127
  Serious: No
  Sender: FDA-Public Use
  Company Number: US-TARO-2012P1052247

PATIENT
  Age: 70 Year
  Sex: Female
  Weight: 63.5 kg

DRUGS (3)
  1. CLOTRIMAZOLE [Suspect]
     Indication: FUNGAL INFECTION
     Route: 067
     Dates: start: 20120725
  2. THYROID MEDICATION [Concomitant]
  3. ^ACID REFLUX^ [Concomitant]

REACTIONS (1)
  - Vaginal haemorrhage [Unknown]
